FAERS Safety Report 9081258 (Version 1)
Quarter: 2013Q1

REPORT INFORMATION
  Report Type: Spontaneous
  Country: US (occurrence: US)
  Receive Date: 20130218
  Receipt Date: 20130218
  Transmission Date: 20140127
  Serious: No
  Sender: FDA-Public Use
  Company Number: US-PFIZER INC-2013058543

PATIENT
  Age: 72 Year
  Sex: Female
  Weight: 63.04 kg

DRUGS (1)
  1. COLESTIPOL HCL [Suspect]
     Indication: BLOOD CHOLESTEROL ABNORMAL
     Dosage: UNK
     Route: 048
     Dates: start: 201212

REACTIONS (2)
  - Wrong technique in drug usage process [Unknown]
  - Migraine [Unknown]
